APPROVED DRUG PRODUCT: PROCAPAN
Active Ingredient: PROCAINAMIDE HYDROCHLORIDE
Strength: 250MG
Dosage Form/Route: CAPSULE;ORAL
Application: A083553 | Product #002
Applicant: PANRAY CORP SUB ORMONT DRUG AND CHEMICAL CO INC
Approved: Approved Prior to Jan 1, 1982 | RLD: No | RS: No | Type: DISCN